FAERS Safety Report 6078844-2 (Version None)
Quarter: 2009Q1

REPORT INFORMATION
  Report Type: 
  Country: None (occurrence: None)
  Receive Date: 20090216
  Receipt Date: 20090205
  Transmission Date: 20090719
  Serious: Yes (Other)
  Sender: FDA-Public Use
  Company Number: PHHY2008GB32852

PATIENT
  Sex: Male

DRUGS (6)
  1. ZOMETA [Suspect]
     Indication: RENAL CELL CARCINOMA
     Dosage: 4 MG EVERY 28 DAYS
     Route: 042
  2. ZOMETA [Suspect]
     Indication: METASTASES TO BONE
  3. SUNITINIB MALATE [Concomitant]
     Indication: RENAL CANCER METASTATIC
     Dosage: 50 MG EVERY 6 WEEKS
     Route: 048
     Dates: start: 20060401
  4. LANSOPRAZOLE [Concomitant]
     Indication: GASTRITIS
     Dosage: 30 MG
     Route: 048
     Dates: start: 20060423
  5. CODEINE [Concomitant]
     Indication: BONE PAIN
     Dosage: 30 MG
     Route: 048
  6. PARACETAMOL [Concomitant]
     Indication: BONE PAIN
     Dosage: 500 MG
     Route: 048

REACTIONS (6)
  - BONE DISORDER [None]
  - BONE FRAGMENTATION [None]
  - JAW DISORDER [None]
  - OSTEONECROSIS [None]
  - PAIN [None]
  - SENSATION OF FOREIGN BODY [None]
